FAERS Safety Report 12122076 (Version 1)
Quarter: 2016Q1

REPORT INFORMATION
  Report Type: Spontaneous
  Country: US (occurrence: US)
  Receive Date: 20160226
  Receipt Date: 20160226
  Transmission Date: 20160526
  Serious: No
  Sender: FDA-Public Use
  Company Number: US-ALLERGAN-1501465US

PATIENT
  Age: 85 Year
  Sex: Male

DRUGS (1)
  1. REFRESH OPTIVE SENSITIVE [Suspect]
     Active Substance: CARBOXYMETHYLCELLULOSE SODIUM\GLYCERIN
     Indication: LACRIMATION INCREASED
     Dosage: UNK
     Route: 047
     Dates: start: 20150122

REACTIONS (5)
  - Dyspnoea [Unknown]
  - Tongue discolouration [Unknown]
  - Retching [Unknown]
  - Dysphagia [Unknown]
  - Multiple use of single-use product [Unknown]
